FAERS Safety Report 6535569-4 (Version None)
Quarter: 2010Q1

REPORT INFORMATION
  Report Type: 
  Country: None (occurrence: None)
  Receive Date: 20100113
  Receipt Date: 20100105
  Transmission Date: 20100710
  Serious: Yes (Hospitalization)
  Sender: FDA-Public Use
  Company Number: JP-BAYER-200915137BYL

PATIENT
  Age: 26 Year
  Sex: Female
  Weight: 45 kg

DRUGS (6)
  1. AVELOX [Suspect]
     Indication: NASOPHARYNGITIS
     Dosage: TOTAL DAILY DOSE: 400 MG  UNIT DOSE: 400 MG
     Route: 048
     Dates: start: 20091028, end: 20091030
  2. OZEX [Suspect]
     Indication: NASOPHARYNGITIS
     Dosage: TOTAL DAILY DOSE: 450 MG  UNIT DOSE: 150 MG
     Route: 048
     Dates: start: 20091006
  3. PREDNISOLONE [Concomitant]
     Indication: NASOPHARYNGITIS
     Dosage: TOTAL DAILY DOSE: 35 MG  UNIT DOSE: 5 MG
     Route: 048
     Dates: start: 20091028, end: 20091030
  4. CELESTAMINE TAB [Concomitant]
     Indication: NASOPHARYNGITIS
     Route: 048
     Dates: start: 20091028, end: 20091030
  5. SEREVENT [Concomitant]
     Indication: NASOPHARYNGITIS
     Dosage: TOTAL DAILY DOSE: 100 ?G  UNIT DOSE: 50 ?G
     Route: 055
     Dates: start: 20091028, end: 20091030
  6. FLUTIDE [Concomitant]
     Indication: NASOPHARYNGITIS
     Dosage: TOTAL DAILY DOSE: 400 ?G  UNIT DOSE: 200 ?G
     Route: 055
     Dates: start: 20091028

REACTIONS (3)
  - EOSINOPHILIC PNEUMONIA ACUTE [None]
  - GASTROENTERITIS EOSINOPHILIC [None]
  - PULMONARY EOSINOPHILIA [None]
